FAERS Safety Report 18594386 (Version 1)
Quarter: 2020Q4

REPORT INFORMATION
  Report Type: Report from Study
  Country: IT (occurrence: IT)
  Receive Date: 20201209
  Receipt Date: 20201209
  Transmission Date: 20210114
  Serious: Yes (Hospitalization)
  Sender: FDA-Public Use
  Company Number: IT-TEVA-2020-IT-1855562

PATIENT
  Age: 88 Year
  Sex: Male

DRUGS (7)
  1. COUMADIN [Concomitant]
     Active Substance: WARFARIN SODIUM
  2. RIVOTRIL [Concomitant]
     Active Substance: CLONAZEPAM
  3. BISOPROLOL HEMIFUMARATE [Concomitant]
     Active Substance: BISOPROLOL FUMARATE
     Dosage: 2.5MG
  4. QUETIAPINE. [Suspect]
     Active Substance: QUETIAPINE
     Indication: NERVOUS SYSTEM DISORDER
     Dosage: 75MG
     Route: 048
     Dates: start: 20200101, end: 20201026
  5. LANOXIN [Concomitant]
     Active Substance: DIGOXIN
  6. IRBESARTAN. [Concomitant]
     Active Substance: IRBESARTAN
     Dosage: 150MG
  7. EUTIROX 125 MICROGRAMMI COMPRESSE [Concomitant]
     Dosage: 125MCG

REACTIONS (1)
  - Electrocardiogram QT prolonged [Not Recovered/Not Resolved]

NARRATIVE: CASE EVENT DATE: 20201026
